FAERS Safety Report 26205924 (Version 1)
Quarter: 2025Q4

REPORT INFORMATION
  Report Type: Spontaneous
  Country: US (occurrence: US)
  Receive Date: 20251229
  Receipt Date: 20251229
  Transmission Date: 20260118
  Serious: No
  Sender: ROCHE
  Company Number: US-ROCHE-10000469503

PATIENT
  Age: 38 Year
  Sex: Female
  Weight: 58.96 kg

DRUGS (4)
  1. XOLAIR PFS [Suspect]
     Active Substance: OMALIZUMAB
     Indication: Food allergy
     Dosage: ALTERNATES WITH 150MG EVERY OTHER WEEK
     Route: 058
  2. XOLAIR PFS [Suspect]
     Active Substance: OMALIZUMAB
     Dosage: ALTERNATES WITH 300MG EVERY OTHER WEEK
     Route: 058
  3. XOLAIR PFS [Suspect]
     Active Substance: OMALIZUMAB
     Route: 058
     Dates: start: 202409
  4. ESTROGENS [Concomitant]
     Active Substance: ESTROGENS

REACTIONS (5)
  - Off label use [Unknown]
  - Underdose [Unknown]
  - Wrong technique in device usage process [Unknown]
  - Malaise [Recovered/Resolved]
  - Iron deficiency anaemia [Unknown]

NARRATIVE: CASE EVENT DATE: 20251221
